FAERS Safety Report 9999764 (Version 1)
Quarter: 2014Q1

REPORT INFORMATION
  Report Type: Spontaneous
  Country: US (occurrence: None)
  Receive Date: 20140228
  Receipt Date: 20140228
  Transmission Date: 20141002
  Serious: Yes (Death, Hospitalization)
  Sender: FDA-Public Use
  Company Number: US-JNJFOC-20130916637

PATIENT
  Sex: Male

DRUGS (1)
  1. MOTRIN [Suspect]
     Indication: PRODUCT USED FOR UNKNOWN INDICATION
     Dosage: 2 DOSE(S)
     Route: 048

REACTIONS (2)
  - Stevens-Johnson syndrome [None]
  - Toxic epidermal necrolysis [None]
